APPROVED DRUG PRODUCT: CEFTRIAXONE
Active Ingredient: CEFTRIAXONE SODIUM
Strength: EQ 10GM BASE/VIAL
Dosage Form/Route: INJECTABLE;INJECTION
Application: A065274 | Product #001
Applicant: TEVA PHARMACEUTICALS USA INC
Approved: May 1, 2006 | RLD: No | RS: No | Type: DISCN